FAERS Safety Report 25893630 (Version 2)
Quarter: 2025Q4

REPORT INFORMATION
  Report Type: Spontaneous
  Country: EU (occurrence: EU)
  Receive Date: 20251008
  Receipt Date: 20251021
  Transmission Date: 20260117
  Serious: Yes (Hospitalization)
  Sender: BRISTOL-MYERS SQUIBB COMPANY
  Company Number: EU-ROCHE-10000394365

PATIENT
  Age: 51 Year
  Sex: Female
  Weight: 51 kg

DRUGS (5)
  1. PACLITAXEL [Suspect]
     Active Substance: PACLITAXEL
     Indication: Triple negative breast cancer
     Dates: start: 20250420, end: 20250905
  2. TIRAGOLUMAB [Suspect]
     Active Substance: TIRAGOLUMAB
     Indication: Triple negative breast cancer
     Dates: start: 20250420, end: 20250822
  3. ATEZOLIZUMAB [Suspect]
     Active Substance: ATEZOLIZUMAB
     Indication: Triple negative breast cancer
     Dates: start: 20250420, end: 20250822
  4. CARBOPLATIN [Suspect]
     Active Substance: CARBOPLATIN
     Indication: Triple negative breast cancer
     Dates: start: 20250420, end: 20250822
  5. SOLUPRED [Concomitant]
     Indication: Myocarditis

REACTIONS (1)
  - Troponin increased [Recovered/Resolved with Sequelae]

NARRATIVE: CASE EVENT DATE: 20250917
